FAERS Safety Report 18113213 (Version 5)
Quarter: 2022Q3

REPORT INFORMATION
  Report Type: Spontaneous
  Country: US (occurrence: US)
  Receive Date: 20200805
  Receipt Date: 20220925
  Transmission Date: 20221027
  Serious: Yes (Hospitalization, Other)
  Sender: FDA-Public Use
  Company Number: US-GILEAD-2020-0488115

PATIENT
  Age: 53 Year
  Sex: Female

DRUGS (3)
  1. TRUVADA [Suspect]
     Active Substance: EMTRICITABINE\TENOFOVIR DISOPROXIL FUMARATE
     Indication: HIV infection
     Dosage: UNK
     Route: 048
     Dates: start: 2009, end: 2014
  2. TRUVADA [Suspect]
     Active Substance: EMTRICITABINE\TENOFOVIR DISOPROXIL FUMARATE
     Dosage: UNK
     Route: 048
     Dates: start: 20120905, end: 20160805
  3. BIKTARVY [Concomitant]
     Active Substance: BICTEGRAVIR SODIUM\EMTRICITABINE\TENOFOVIR ALAFENAMIDE FUMARATE

REACTIONS (14)
  - Weight decreased [Not Recovered/Not Resolved]
  - Eating disorder [Not Recovered/Not Resolved]
  - Oesophageal disorder [Not Recovered/Not Resolved]
  - Hip arthroplasty [Not Recovered/Not Resolved]
  - Chronic kidney disease [Unknown]
  - Multiple fractures [Unknown]
  - Osteonecrosis [Not Recovered/Not Resolved]
  - Renal failure [Unknown]
  - Acute kidney injury [Recovered/Resolved]
  - Tooth loss [Not Recovered/Not Resolved]
  - Bone density decreased [Unknown]
  - Vitamin D deficiency [Not Recovered/Not Resolved]
  - Bone loss [Unknown]
  - Osteopenia [Not Recovered/Not Resolved]

NARRATIVE: CASE EVENT DATE: 20160401
